FAERS Safety Report 21783424 (Version 1)
Quarter: 2022Q4

REPORT INFORMATION
  Report Type: Spontaneous
  Country: IT (occurrence: IT)
  Receive Date: 20221227
  Receipt Date: 20221227
  Transmission Date: 20230112
  Serious: Yes (Other)
  Sender: FDA-Public Use
  Company Number: None

PATIENT
  Age: 58 Year
  Sex: Male
  Weight: 69 kg

DRUGS (4)
  1. OXALIPLATIN [Suspect]
     Active Substance: OXALIPLATIN
     Indication: Cholangiocarcinoma
     Dosage: DOSAGE: 150UNIT OF MEASUREMENT: MILLIGRAMS
  2. FLUOROURACIL [Suspect]
     Active Substance: FLUOROURACIL
     Indication: Cholangiocarcinoma
     Dosage: DOSAGE: 360UNIT OF MEASUREMENT: MILLIGRAMS IN BOLUS
  3. FLUOROURACIL [Suspect]
     Active Substance: FLUOROURACIL
     Dosage: DOSAGE: 2160 UNIT OF MEASUREMENT: MILLIGRAMS IN IC IN 46-48 HOURS
  4. LEVOLEUCOVORIN CALCIUM [Concomitant]
     Active Substance: LEVOLEUCOVORIN CALCIUM
     Indication: Cholangiocarcinoma
     Dosage: DOSAGE: 180UNIT OF MEASUREMENT: MILLIGRAMS

REACTIONS (1)
  - Cardiotoxicity [Not Recovered/Not Resolved]

NARRATIVE: CASE EVENT DATE: 20221213
